FAERS Safety Report 5510838-5 (Version None)
Quarter: 2007Q4

REPORT INFORMATION
  Report Type: 
  Country: None (occurrence: None)
  Receive Date: 20071107
  Receipt Date: 20071023
  Transmission Date: 20080405
  Serious: Yes (Other)
  Sender: FDA-Public Use
  Company Number: 163486USA

PATIENT
  Age: 56 Year
  Sex: Male

DRUGS (2)
  1. POLYETHYLENE GLYCOL [Suspect]
     Dosage: ORAL
     Route: 048
  2. BISACODYL [Suspect]
     Dosage: 4 TABLETS ONE DAY

REACTIONS (1)
  - COLITIS ISCHAEMIC [None]
